FAERS Safety Report 5587346-9 (Version None)
Quarter: 2008Q1

REPORT INFORMATION
  Report Type: 
  Country: None (occurrence: None)
  Receive Date: 20080110
  Receipt Date: 20080103
  Transmission Date: 20080703
  Serious: Yes (Other)
  Sender: FDA-Public Use
  Company Number: BR-PFIZER INC-2008001555

PATIENT
  Sex: Female
  Weight: 52 kg

DRUGS (1)
  1. DEPO-PROVERA SUSPENSION/INJ [Suspect]
     Indication: CONTRACEPTION
     Route: 030
     Dates: start: 20070915, end: 20070915

REACTIONS (6)
  - METRORRHAGIA [None]
  - NAUSEA [None]
  - POSTPARTUM DEPRESSION [None]
  - PREGNANCY [None]
  - SUPPRESSED LACTATION [None]
  - WEIGHT DECREASED [None]
